FAERS Safety Report 11641039 (Version 1)
Quarter: 2015Q4

REPORT INFORMATION
  Report Type: Spontaneous
  Country: SA (occurrence: SA)
  Receive Date: 20151019
  Receipt Date: 20151019
  Transmission Date: 20160304
  Serious: Yes (Other)
  Sender: FDA-Public Use
  Company Number: SA-JNJFOC-20151008554

PATIENT

DRUGS (2)
  1. CISPLATIN. [Suspect]
     Active Substance: CISPLATIN
     Indication: OVARIAN GRANULOSA CELL TUMOUR
     Route: 033
  2. DOXORUBICIN HYDROCHLORIDE. [Suspect]
     Active Substance: DOXORUBICIN HYDROCHLORIDE
     Indication: OVARIAN GRANULOSA CELL TUMOUR
     Route: 033

REACTIONS (3)
  - Ascites [Unknown]
  - Incorrect route of drug administration [Unknown]
  - Fluid retention [Unknown]
